FAERS Safety Report 4613763-7 (Version None)
Quarter: 2005Q1

REPORT INFORMATION
  Report Type: 
  Country: None (occurrence: None)
  Receive Date: 20050321
  Receipt Date: 20030401
  Transmission Date: 20050727
  Serious: Yes (Hospitalization, Other)
  Sender: FDA-Public Use
  Company Number: US-MERCK-0304USA00190

PATIENT
  Age: 45 Year
  Sex: Female
  Weight: 75 kg

DRUGS (13)
  1. VITAMINS (UNSPECIFIED) [Concomitant]
     Route: 065
  2. SYNTHROID [Concomitant]
     Route: 065
  3. INDERAL [Concomitant]
     Route: 065
  4. ZANTAC [Concomitant]
     Route: 065
  5. CENESTIN [Concomitant]
     Route: 065
  6. VALIUM [Concomitant]
     Route: 065
  7. VALTREX [Concomitant]
     Route: 065
     Dates: end: 20030107
  8. IMITREX [Concomitant]
     Route: 065
  9. VICODIN [Concomitant]
     Route: 065
  10. PROZAC [Concomitant]
     Route: 065
  11. VIOXX [Suspect]
     Indication: BACK PAIN
     Route: 048
     Dates: start: 20010101, end: 20030101
  12. [THERAPY UNSPECIFIED] [Concomitant]
     Route: 065
     Dates: end: 20021221
  13. LEVBID [Concomitant]
     Route: 065

REACTIONS (6)
  - CELLULITIS STAPHYLOCOCCAL [None]
  - DEEP VEIN THROMBOSIS [None]
  - DRUG HYPERSENSITIVITY [None]
  - GANGRENE [None]
  - HYPERTENSION [None]
  - OSTEOMYELITIS [None]
